FAERS Safety Report 9462941 (Version 1)
Quarter: 2013Q3

REPORT INFORMATION
  Report Type: Spontaneous
  Country: DE (occurrence: DE)
  Receive Date: 20130816
  Receipt Date: 20130816
  Transmission Date: 20140515
  Serious: Yes (Hospitalization)
  Sender: FDA-Public Use
  Company Number: ALCN2013DE004210

PATIENT
  Age: 72 Year
  Sex: Female

DRUGS (1)
  1. FLUORESCEIN SODIUM [Suspect]
     Indication: ANGIOGRAM RETINA
     Dosage: 5 ML, ONCE/SINGLE
     Route: 042
     Dates: start: 20130806, end: 20130806

REACTIONS (3)
  - Respiratory distress [Recovered/Resolved]
  - Swelling face [Recovered/Resolved]
  - Hypersensitivity [Recovered/Resolved]
